FAERS Safety Report 11686593 (Version 4)
Quarter: 2016Q4

REPORT INFORMATION
  Report Type: Spontaneous
  Country: US (occurrence: US)
  Receive Date: 20151030
  Receipt Date: 20161208
  Transmission Date: 20170206
  Serious: No
  Sender: FDA-Public Use
  Company Number: US-PFIZER INC-2015358593

PATIENT
  Age: 47 Year
  Sex: Female

DRUGS (5)
  1. IMITREX [Concomitant]
     Active Substance: SUMATRIPTAN SUCCINATE
     Indication: MIGRAINE
     Dosage: 100 MG, AS NEEDED
     Dates: start: 201302, end: 201510
  2. RELPAX [Suspect]
     Active Substance: ELETRIPTAN HYDROBROMIDE
     Dosage: 40 MG, AS NEEDED, (PRN)
     Dates: start: 201511
  3. RELPAX [Suspect]
     Active Substance: ELETRIPTAN HYDROBROMIDE
     Indication: MIGRAINE
     Dosage: 40 MG, AS NEEDED, (PRN)
     Dates: start: 201503
  4. RELPAX [Suspect]
     Active Substance: ELETRIPTAN HYDROBROMIDE
     Dosage: 40 MG, UNK (1 TAB/ AT  ONSET OF AE)
     Route: 048
  5. NARATRIPTAN [Concomitant]
     Active Substance: NARATRIPTAN HYDROCHLORIDE
     Indication: MIGRAINE
     Dosage: 2.5 MG, AS NEEDED
     Dates: start: 201505, end: 201509

REACTIONS (2)
  - Circumstance or information capable of leading to medication error [Unknown]
  - Pain [Not Recovered/Not Resolved]
